FAERS Safety Report 5928379-X (Version None)
Quarter: 2008Q4

REPORT INFORMATION
  Report Type: 
  Country: None (occurrence: None)
  Receive Date: 20081021
  Receipt Date: 20081006
  Transmission Date: 20090506
  Serious: Yes (Hospitalization)
  Sender: FDA-Public Use
  Company Number: 2008SP002551

PATIENT
  Age: 7 Year
  Sex: Male

DRUGS (5)
  1. CICLESONIDE HFA (CICLESONIDE HFA) [Suspect]
     Indication: ASTHMA
     Dosage: QD; INHALATION
     Route: 055
     Dates: start: 20080929
  2. ZADITOR	 /00495201/ [Concomitant]
  3. PRANLUKAST [Concomitant]
  4. FLOMOX [Concomitant]
  5. MUCODYNE [Concomitant]

REACTIONS (2)
  - PERIORBITAL CELLULITIS [None]
  - SENSORY DISTURBANCE [None]
